FAERS Safety Report 9940670 (Version 2)
Quarter: 2014Q1

REPORT INFORMATION
  Report Type: Spontaneous
  Country: US (occurrence: US)
  Receive Date: 20140303
  Receipt Date: 20140303
  Transmission Date: 20141002
  Serious: Yes (Disabling)
  Sender: FDA-Public Use
  Company Number: US-GE HEALTHCARE MEDICAL DIAGNOSTICS-OSCN-PR-0902S-0118

PATIENT
  Age: 52 Year
  Sex: Male

DRUGS (8)
  1. OMNISCAN [Suspect]
     Indication: HYPOAESTHESIA
     Route: 065
     Dates: start: 20040817, end: 20040817
  2. OMNISCAN [Suspect]
     Indication: RENAL CELL CARCINOMA
     Route: 065
     Dates: start: 20040826, end: 20040826
  3. OMNISCAN [Suspect]
     Indication: NEOPLASM MALIGNANT
     Route: 065
     Dates: start: 20041101, end: 20041101
  4. OMNISCAN [Suspect]
     Indication: SPINAL FUSION SURGERY
     Route: 065
     Dates: start: 20051115, end: 20051115
  5. OMNISCAN [Suspect]
     Indication: COMPRESSION FRACTURE
     Route: 065
     Dates: start: 20050419, end: 20050419
  6. OMNISCAN [Suspect]
     Indication: PRODUCT USED FOR UNKNOWN INDICATION
     Route: 065
     Dates: start: 20060821, end: 20060821
  7. OMNISCAN [Suspect]
     Indication: PRODUCT USED FOR UNKNOWN INDICATION
     Route: 065
     Dates: start: 20060822, end: 20060822
  8. GADOLINIUM (UNSPECIFIED) [Suspect]
     Indication: PRODUCT USED FOR UNKNOWN INDICATION
     Route: 065
     Dates: start: 20040902, end: 20040902

REACTIONS (1)
  - Nephrogenic systemic fibrosis [Not Recovered/Not Resolved]
